FAERS Safety Report 8543974-X (Version None)
Quarter: 2012Q3

REPORT INFORMATION
  Report Type: 
  Country: None (occurrence: None)
  Receive Date: 20120727
  Receipt Date: 20120720
  Transmission Date: 20120928
  Serious: Yes (Other)
  Sender: FDA-Public Use
  Company Number: US-ROXANE LABORATORIES, INC.-2012-RO-01454RO

PATIENT
  Sex: Female
  Weight: 77 kg

DRUGS (2)
  1. LEVOTHYROXINE SODIUM [Concomitant]
     Indication: THYROID DISORDER
     Dosage: 50 MCG
     Dates: start: 20000101
  2. LOSARTAN POTASSIUM AND HYDROCHLOROTHIAZIDE [Suspect]
     Indication: HYPERTENSION
     Route: 048
     Dates: start: 20120227, end: 20120515

REACTIONS (6)
  - PAIN [None]
  - JOINT SWELLING [None]
  - KIDNEY INFECTION [None]
  - BLOOD POTASSIUM DECREASED [None]
  - ERYTHEMA [None]
  - SWELLING [None]
